FAERS Safety Report 6043587-8 (Version None)
Quarter: 2009Q1

REPORT INFORMATION
  Report Type: 
  Country: None (occurrence: None)
  Receive Date: 20090115
  Receipt Date: 20090115
  Transmission Date: 20090719
  Serious: Yes (Other)
  Sender: FDA-Public Use
  Company Number: None

PATIENT
  Age: 50 Year
  Sex: Female
  Weight: 104.3273 kg

DRUGS (1)
  1. LISINOPRIL AND HYDROCHLOROTHIAZIDE [Suspect]
     Indication: HYPERTENSION
     Dosage: 1DAILY 1XS PO
     Route: 048
     Dates: start: 19970102, end: 20080101

REACTIONS (19)
  - ABDOMINAL DISTENSION [None]
  - ABDOMINAL PAIN [None]
  - BACK PAIN [None]
  - BLADDER PAIN [None]
  - BLINDNESS TRANSIENT [None]
  - DYSPNOEA [None]
  - FEELING ABNORMAL [None]
  - HEADACHE [None]
  - HYPOAESTHESIA [None]
  - MUSCULOSKELETAL PAIN [None]
  - NECK PAIN [None]
  - NEUROPATHY PERIPHERAL [None]
  - OEDEMA PERIPHERAL [None]
  - PAIN [None]
  - SKIN ULCER [None]
  - SWELLING [None]
  - TRANSIENT ISCHAEMIC ATTACK [None]
  - URINARY RETENTION [None]
  - WHEEZING [None]
